FAERS Safety Report 9312633 (Version 2)
Quarter: 2013Q3

REPORT INFORMATION
  Report Type: Spontaneous
  Country: DE (occurrence: DE)
  Receive Date: 20130528
  Receipt Date: 20130816
  Transmission Date: 20140515
  Serious: Yes (Other)
  Sender: FDA-Public Use
  Company Number: DE-GLAXOSMITHKLINE-D0079937A

PATIENT
  Sex: Male

DRUGS (4)
  1. DUODART [Suspect]
     Route: 048
  2. MARCUMAR [Concomitant]
     Route: 065
  3. METOPROLOL [Concomitant]
     Route: 065
  4. RAMIPRIL [Concomitant]
     Route: 065

REACTIONS (1)
  - Dupuytren^s contracture [Not Recovered/Not Resolved]
